FAERS Safety Report 16657489 (Version 2)
Quarter: 2019Q3

REPORT INFORMATION
  Report Type: Report from Study
  Country: US (occurrence: US)
  Receive Date: 20190801
  Receipt Date: 20190809
  Transmission Date: 20191004
  Serious: No
  Sender: FDA-Public Use
  Company Number: US-SA-2019SA206018

PATIENT
  Age: 27 Year
  Sex: Female
  Weight: 104.9 kg

DRUGS (1)
  1. CAPLACIZUMAB-YHDP [Suspect]
     Active Substance: CAPLACIZUMAB-YHDP
     Indication: THROMBOTIC MICROANGIOPATHY
     Dosage: 11 MG, QD
     Route: 058
     Dates: start: 20190713

REACTIONS (4)
  - Injection site pain [Unknown]
  - Haemoglobin decreased [Recovered/Resolved]
  - Vision blurred [Unknown]
  - Platelet count decreased [Recovered/Resolved]
